FAERS Safety Report 6715739-2 (Version None)
Quarter: 2010Q2

REPORT INFORMATION
  Report Type: 
  Country: None (occurrence: None)
  Receive Date: 20100506
  Receipt Date: 20100506
  Transmission Date: 20101027
  Serious: Yes (Hospitalization)
  Sender: FDA-Public Use
  Company Number: None

PATIENT
  Age: 71 Year
  Sex: Female
  Weight: 107 kg

DRUGS (8)
  1. ASPIRIN [Suspect]
     Indication: MYOCARDIAL INFARCTION
     Dosage: 325MG DAILY PO OUTPT
     Route: 048
  2. CLOPIDOGREL [Suspect]
     Dosage: 75 MG DAILY PO
     Route: 048
  3. ATORVASTATIN [Concomitant]
  4. AMOXICILLIN AND CLAVULANATE POTASSIUM [Concomitant]
  5. LORATADINE [Concomitant]
  6. METOPROLOL [Concomitant]
  7. VALSARTAN [Concomitant]
  8. RANITIDINE [Concomitant]

REACTIONS (1)
  - EPISTAXIS [None]
